FAERS Safety Report 13242291 (Version 1)
Quarter: 2017Q1

REPORT INFORMATION
  Report Type: Spontaneous
  Country: US (occurrence: US)
  Receive Date: 20170216
  Receipt Date: 20170216
  Transmission Date: 20170428
  Serious: No
  Sender: FDA-Public Use
  Company Number: None

PATIENT
  Age: 66 Year
  Sex: Female
  Weight: 48.54 kg

DRUGS (7)
  1. FLUTICASONE PROP NASAL SPRAY [Concomitant]
  2. VITAMIN D3 [Concomitant]
     Active Substance: CHOLECALCIFEROL
  3. ZOLEDRONIC ACID 5MG/100ML [Suspect]
     Active Substance: ZOLEDRONIC ACID
     Indication: OSTEOPOROSIS
     Dosage: I.V. YEARLY
     Route: 042
     Dates: start: 201112, end: 20161206
  4. CENTRUM SILVER [Concomitant]
     Active Substance: MINERALS\VITAMINS
  5. ADVIL [Concomitant]
     Active Substance: IBUPROFEN
  6. LEVOTHYROXINE. [Concomitant]
     Active Substance: LEVOTHYROXINE
  7. 600 +D3 CALTRATE SOFT CHEWS [Concomitant]

REACTIONS (5)
  - Hypoaesthesia [None]
  - Arthralgia [None]
  - Musculoskeletal pain [None]
  - Paraesthesia [None]
  - Bone pain [None]

NARRATIVE: CASE EVENT DATE: 20161207
